FAERS Safety Report 15556561 (Version 1)
Quarter: 2018Q4

REPORT INFORMATION
  Report Type: Spontaneous
  Country: JP (occurrence: JP)
  Receive Date: 20181026
  Receipt Date: 20181026
  Transmission Date: 20190205
  Serious: Yes (Hospitalization)
  Sender: FDA-Public Use
  Company Number: JP-ASTRAZENECA-2018SF39117

PATIENT
  Age: 91 Year
  Sex: Female
  Weight: 38 kg

DRUGS (12)
  1. PREDNISOLONE. [Concomitant]
     Active Substance: PREDNISOLONE
     Dosage: DOSE UNKNOWN
     Route: 048
  2. NEXIUM [Concomitant]
     Active Substance: ESOMEPRAZOLE MAGNESIUM
     Dosage: DOSE UNKNOWN
     Route: 048
  3. CELECOX [Concomitant]
     Active Substance: CELECOXIB
     Dosage: DOSE UNKNOWN
     Route: 048
  4. NORVASC [Concomitant]
     Active Substance: AMLODIPINE BESYLATE
     Dosage: DOSE UNKNOWN
     Route: 048
  5. MUCOSOLVAN L [Concomitant]
     Active Substance: AMBROXOL HYDROCHLORIDE
     Dosage: DOSE UNKNOWN
     Route: 048
  6. IRESSA [Suspect]
     Active Substance: GEFITINIB
     Indication: LUNG ADENOCARCINOMA
     Route: 048
     Dates: start: 20180508, end: 20180817
  7. MUCOSTA [Concomitant]
     Active Substance: REBAMIPIDE
     Dosage: DOSE UNKNOWN
     Route: 048
  8. DENOTAS [Concomitant]
     Active Substance: CALCIUM CARBONATE\CHOLECALCIFEROL\MAGNESIUM CARBONATE
     Dosage: DOSE UNKNOWN
     Route: 048
  9. MEDICON [Concomitant]
     Active Substance: DEXTROMETHORPHAN HYDROBROMIDE
     Dosage: DOSE UNKNOWN
     Route: 048
  10. BACTRAMIN [Concomitant]
     Active Substance: SULFAMETHOXAZOLE\TRIMETHOPRIM
     Dosage: DOSE UNKNOWN
     Route: 048
  11. CRAVIT [Concomitant]
     Active Substance: LEVOFLOXACIN
     Dosage: DOSE UNKNOWN
     Route: 048
  12. MUCODYNE [Concomitant]
     Active Substance: CARBOCYSTEINE
     Dosage: DOSE UNKNOWN
     Route: 048

REACTIONS (2)
  - Palpitations [Unknown]
  - Lung disorder [Recovering/Resolving]

NARRATIVE: CASE EVENT DATE: 20180803
